FAERS Safety Report 4953765-4 (Version None)
Quarter: 2006Q1

REPORT INFORMATION
  Report Type: 
  Country: None (occurrence: None)
  Receive Date: 20060321
  Receipt Date: 20060310
  Transmission Date: 20060701
  Serious: Yes (Death, Hospitalization)
  Sender: FDA-Public Use
  Company Number: US-2006-004347

PATIENT
  Age: 39 Year
  Sex: Female

DRUGS (6)
  1. CAMPATH [Suspect]
     Indication: BONE MARROW CONDITIONING REGIMEN
     Dosage: 90 MG TOTAL OVER 4 DAYS, INTRAVENOUS
     Route: 042
     Dates: start: 20051223, end: 20051226
  2. FLUDARA [Suspect]
     Indication: BONE MARROW CONDITIONING REGIMEN
     Dosage: 30 MG/M2, 1X/DAY D-9 TO D-5, INTRAVENOUS
     Route: 042
     Dates: start: 20051228, end: 20060101
  3. LEUKINE [Suspect]
     Indication: COLONY STIMULATING FACTOR THERAPY
     Dosage: 250 MCG/M2, 1X/DAY, SUBCUTANEOUS
     Route: 058
     Dates: start: 20060107
  4. MELPHALAN (MELPHALAN) [Suspect]
     Indication: BONE MARROW CONDITIONING REGIMEN
     Dosage: 140 MG/M2, 1 DOSE ON D-3, INTRAVENOUS
     Route: 042
     Dates: start: 20060103, end: 20060103
  5. SULFAMETHOXAZOLE + TRIMETHOPRIM [Concomitant]
  6. VORICONAZOLE (VORICONAZOLE) [Concomitant]

REACTIONS (25)
  - ACUTE MYELOID LEUKAEMIA [None]
  - CARDIAC FAILURE CONGESTIVE [None]
  - CEREBRAL INFARCTION [None]
  - COAGULOPATHY [None]
  - CONDITION AGGRAVATED [None]
  - DECUBITUS ULCER [None]
  - DIARRHOEA [None]
  - ENTEROCOCCAL BACTERAEMIA [None]
  - FEBRILE NEUTROPENIA [None]
  - GALLBLADDER DISORDER [None]
  - GRAFT VERSUS HOST DISEASE IN LIVER [None]
  - HEPATIC FAILURE [None]
  - HYPERBILIRUBINAEMIA [None]
  - MAJOR DEPRESSION [None]
  - MALIGNANT NEOPLASM PROGRESSION [None]
  - MENINGITIS ENTEROCOCCAL [None]
  - MENTAL STATUS CHANGES [None]
  - PYREXIA [None]
  - RASH [None]
  - RENAL FAILURE ACUTE [None]
  - RESPIRATORY FAILURE [None]
  - SEPSIS [None]
  - STEM CELL TRANSPLANT [None]
  - THERAPY NON-RESPONDER [None]
  - TRANSPLANT REJECTION [None]
